FAERS Safety Report 7938396-6 (Version None)
Quarter: 2011Q4

REPORT INFORMATION
  Report Type: 
  Country: None (occurrence: None)
  Receive Date: 20111123
  Receipt Date: 20111121
  Transmission Date: 20120403
  Serious: Yes (Other)
  Sender: FDA-Public Use
  Company Number: US-PFIZER INC-2011269756

PATIENT
  Sex: Female
  Weight: 72.562 kg

DRUGS (2)
  1. CHANTIX [Suspect]
     Indication: SMOKING CESSATION THERAPY
     Dosage: 0.5 MG, 1X/DAY
     Route: 048
     Dates: start: 20111021, end: 20111028
  2. CRESTOR [Concomitant]
     Indication: BLOOD CHOLESTEROL INCREASED
     Dosage: UNK
     Dates: start: 20060101

REACTIONS (8)
  - DEPRESSED MOOD [None]
  - ANXIETY [None]
  - AGITATION [None]
  - FEAR [None]
  - NIGHTMARE [None]
  - HEADACHE [None]
  - NAUSEA [None]
  - MALAISE [None]
